FAERS Safety Report 9728949 (Version 1)
Quarter: 2013Q4

REPORT INFORMATION
  Report Type: Spontaneous
  Country: US (occurrence: US)
  Receive Date: 20131204
  Receipt Date: 20131204
  Transmission Date: 20140711
  Serious: Yes (Death)
  Sender: FDA-Public Use
  Company Number: US-BAYER-2013-147966

PATIENT
  Age: 59 Year
  Sex: Female

DRUGS (5)
  1. NEXAVAR [Suspect]
     Indication: HEPATIC CANCER
     Dosage: UNK
     Dates: start: 20131120
  2. XANAX [Concomitant]
  3. SYNTHROID [Concomitant]
  4. CYMBALTA [Concomitant]
  5. LISINOPRIL [Concomitant]

REACTIONS (1)
  - Myocardial infarction [Fatal]
